FAERS Safety Report 18632676 (Version 1)
Quarter: 2020Q4

REPORT INFORMATION
  Report Type: Spontaneous
  Country: US (occurrence: US)
  Receive Date: 20201218
  Receipt Date: 20201218
  Transmission Date: 20210114
  Serious: Yes (Other)
  Sender: FDA-Public Use
  Company Number: US-ROCHE-2732568

PATIENT
  Age: 53 Year
  Sex: Female

DRUGS (3)
  1. XOLAIR [Suspect]
     Active Substance: OMALIZUMAB
  2. XOLAIR [Suspect]
     Active Substance: OMALIZUMAB
  3. XOLAIR [Suspect]
     Active Substance: OMALIZUMAB
     Indication: URTICARIA
     Dosage: 150 MG / ML
     Route: 058
     Dates: start: 20200720

REACTIONS (2)
  - Autoimmune disorder [Unknown]
  - Drug ineffective [Unknown]

NARRATIVE: CASE EVENT DATE: 20201211
